FAERS Safety Report 6356617-0 (Version None)
Quarter: 2009Q3

REPORT INFORMATION
  Report Type: 
  Country: None (occurrence: None)
  Receive Date: 20090910
  Receipt Date: 20090910
  Transmission Date: 20100115
  Serious: Yes (Other)
  Sender: FDA-Public Use
  Company Number: None

PATIENT
  Sex: Female
  Weight: 68.0396 kg

DRUGS (1)
  1. MIRENA [Suspect]
     Indication: CONTRACEPTION
     Dates: start: 20080903, end: 20090908

REACTIONS (5)
  - ABDOMINAL DISTENSION [None]
  - MIGRAINE WITH AURA [None]
  - OVARIAN CYST RUPTURED [None]
  - PARAESTHESIA [None]
  - WEIGHT INCREASED [None]
